FAERS Safety Report 22331345 (Version 1)
Quarter: 2023Q2

REPORT INFORMATION
  Report Type: Spontaneous
  Country: US (occurrence: US)
  Receive Date: 20230517
  Receipt Date: 20230517
  Transmission Date: 20230722
  Serious: No
  Sender: FDA-Public Use
  Company Number: US-SA-SAC20230516001233

PATIENT
  Sex: Male

DRUGS (1)
  1. DUPIXENT [Suspect]
     Active Substance: DUPILUMAB
     Indication: Dermatitis atopic
     Dosage: 300 MG, QOW
     Route: 058

REACTIONS (8)
  - Depression [Unknown]
  - Anxiety [Unknown]
  - Stress [Unknown]
  - Condition aggravated [Unknown]
  - Fatigue [Unknown]
  - Lethargy [Unknown]
  - Memory impairment [Unknown]
  - Insomnia [Unknown]
